FAERS Safety Report 22155778 (Version 3)
Quarter: 2023Q2

REPORT INFORMATION
  Report Type: Spontaneous
  Country: DE (occurrence: None)
  Receive Date: 20230330
  Receipt Date: 20230505
  Transmission Date: 20230721
  Serious: Yes (Life-Threatening)
  Sender: FDA-Public Use
  Company Number: DE-ROCHE-3316670

PATIENT
  Sex: Female
  Weight: 58 kg

DRUGS (4)
  1. OCREVUS [Suspect]
     Active Substance: OCRELIZUMAB
     Indication: Relapsing-remitting multiple sclerosis
     Dosage: 2 X 300 MG
     Route: 042
     Dates: start: 202208, end: 202208
  2. OCREVUS [Suspect]
     Active Substance: OCRELIZUMAB
     Indication: Multiple sclerosis
  3. METHYLPREDNISOLONE [Concomitant]
     Active Substance: METHYLPREDNISOLONE
     Dosage: ONCE
     Route: 042
     Dates: start: 202208, end: 202208
  4. TYSABRI [Concomitant]
     Active Substance: NATALIZUMAB
     Dates: start: 20230303

REACTIONS (1)
  - Myopericarditis [Recovering/Resolving]
